FAERS Safety Report 13587355 (Version 1)
Quarter: 2017Q2

REPORT INFORMATION
  Report Type: Spontaneous
  Country: US (occurrence: US)
  Receive Date: 20170526
  Receipt Date: 20170526
  Transmission Date: 20170830
  Serious: Yes (Other)
  Sender: FDA-Public Use
  Company Number: US-MYLANLABS-2017M1031984

PATIENT

DRUGS (2)
  1. BUPIVACAINE. [Concomitant]
     Active Substance: BUPIVACAINE
     Indication: PAIN
     Dosage: 20 ML 0.25%
     Route: 065
  2. TRIAMCINOLONE [Suspect]
     Active Substance: TRIAMCINOLONE
     Indication: PAIN
     Dosage: 2 ML 40 MG/ML TRIAMCINOLONE (80 MG)
     Route: 065

REACTIONS (1)
  - Acute psychosis [Recovered/Resolved]
